FAERS Safety Report 6244862-4 (Version None)
Quarter: 2009Q2

REPORT INFORMATION
  Report Type: 
  Country: None (occurrence: None)
  Receive Date: 20090625
  Receipt Date: 20090619
  Transmission Date: 20091009
  Serious: Yes (Disabling)
  Sender: FDA-Public Use
  Company Number: A0792528A

PATIENT
  Sex: Female

DRUGS (1)
  1. VALTREX [Suspect]
     Dosage: 2G SINGLE DOSE
     Route: 048
     Dates: start: 20090601

REACTIONS (3)
  - MALAISE [None]
  - PROTEIN URINE PRESENT [None]
  - RENAL DISORDER [None]
